FAERS Safety Report 17292823 (Version 2)
Quarter: 2020Q1

REPORT INFORMATION
  Report Type: Other
  Country: GB (occurrence: GB)
  Receive Date: 20200121
  Receipt Date: 20200121
  Transmission Date: 20200409
  Serious: Yes (Life-Threatening, Hospitalization, Other)
  Sender: FDA-Public Use
  Company Number: GB-EMCURE PHARMACEUTICALS LTD-2017-EPL-0100

PATIENT
  Age: 52 Year
  Sex: Male

DRUGS (29)
  1. BISOPROLOL FUMARATE. [Suspect]
     Active Substance: BISOPROLOL FUMARATE
     Dosage: 16 DOSAGE FORM, SINGLE
     Dates: start: 20141201, end: 20141201
  2. ANADIN                             /00112401/ [Suspect]
     Active Substance: ASPIRIN\CAFFEINE\QUININE\SALICYLAMIDE
     Indication: PRODUCT USED FOR UNKNOWN INDICATION
     Dosage: 200 MILLIGRAM
  3. ATORVASTATIN [Concomitant]
     Active Substance: ATORVASTATIN
     Dosage: 20 MILLIGRAM
     Dates: start: 20131008, end: 20140330
  4. CO-AMOXICLAV                       /00756801/ [Concomitant]
     Active Substance: AMOXICILLIN\CLAVULANIC ACID
     Dosage: 625 MILLIGRAM, TID
     Route: 048
     Dates: start: 20140418, end: 20140423
  5. FLUOXETINE [Suspect]
     Active Substance: FLUOXETINE HYDROCHLORIDE
     Indication: DEPRESSION
     Dosage: 20 MILLIGRAM, QD
     Route: 048
     Dates: start: 20120813
  6. AMLODIPINE BESILATE [Suspect]
     Active Substance: AMLODIPINE BESYLATE
     Dosage: 20 DOSAGE FORM, SINGLE
     Dates: start: 20141201, end: 20141201
  7. IBUPROFEN. [Suspect]
     Active Substance: IBUPROFEN
     Indication: PRODUCT USED FOR UNKNOWN INDICATION
     Dosage: UNK
     Dates: start: 20141119
  8. RAMIPRIL. [Suspect]
     Active Substance: RAMIPRIL
     Indication: PRODUCT USED FOR UNKNOWN INDICATION
     Dosage: UNK
     Dates: start: 20131010
  9. ATORVASTATIN [Concomitant]
     Active Substance: ATORVASTATIN
     Dosage: 80 MILLIGRAM
     Dates: start: 20131008, end: 20131219
  10. CODEINE PHOSPHATE [Concomitant]
     Active Substance: CODEINE PHOSPHATE
     Dosage: 30 MILLIGRAM
     Route: 048
     Dates: start: 20140416
  11. FLUOXETINE [Suspect]
     Active Substance: FLUOXETINE HYDROCHLORIDE
     Dosage: 20 MILLIGRAM, QD
     Route: 048
     Dates: start: 20141217, end: 20141217
  12. CLOPIDOGREL                        /01220705/ [Concomitant]
     Active Substance: CLOPIDOGREL HYDROCHLORIDE
     Dosage: UNK
     Dates: start: 20131008
  13. RAMIPRIL. [Suspect]
     Active Substance: RAMIPRIL
     Dosage: 56 DOSAGE FORM, SINGLE
     Dates: start: 20141201, end: 20141201
  14. CODEINE PHOSPHATE [Concomitant]
     Active Substance: CODEINE PHOSPHATE
     Dosage: 30 MG, 4X/DAY AS NEEDED
     Route: 048
     Dates: start: 20140416
  15. GLUCAGON. [Concomitant]
     Active Substance: GLUCAGON
     Dosage: 4 MILLIGRAM, DAILY
     Route: 042
     Dates: start: 20141201, end: 20141201
  16. BISOPROLOL FUMARATE. [Suspect]
     Active Substance: BISOPROLOL FUMARATE
     Indication: PRODUCT USED FOR UNKNOWN INDICATION
     Dosage: UNK
     Dates: start: 20131008
  17. GLYCERYL TRINITRATE [Concomitant]
     Active Substance: NITROGLYCERIN
     Dosage: UNK
     Dates: start: 20131008
  18. AMLODIPINE BESILATE [Suspect]
     Active Substance: AMLODIPINE BESYLATE
     Indication: PRODUCT USED FOR UNKNOWN INDICATION
     Dosage: UNK
     Dates: start: 20101001
  19. ACETYLSALICYLIC ACID [Suspect]
     Active Substance: ASPIRIN
     Indication: PRODUCT USED FOR UNKNOWN INDICATION
     Dosage: 75 MILLIGRAM
     Dates: start: 20131008, end: 20141201
  20. ACETYLSALICYLIC ACID [Suspect]
     Active Substance: ASPIRIN
     Dosage: 48 DOSAGE FORM, SINGLE
     Dates: start: 20141201, end: 20141201
  21. IBUPROFEN. [Suspect]
     Active Substance: IBUPROFEN
     Dosage: 16 DOSAGE FORM, SINGLE
     Dates: start: 20141201, end: 20141201
  22. CLOPIDOGREL HYDROGEN SULFATE [Suspect]
     Active Substance: CLOPIDOGREL BISULFATE
     Indication: PRODUCT USED FOR UNKNOWN INDICATION
     Dosage: UNK
     Dates: start: 20131008
  23. ATORVASTATIN [Concomitant]
     Active Substance: ATORVASTATIN
     Dosage: 20 UNK
     Dates: start: 20140110, end: 20140330
  24. CO-AMOXICLAV                       /00756801/ [Concomitant]
     Active Substance: AMOXICILLIN\CLAVULANIC ACID
     Dosage: UNK
     Route: 042
     Dates: start: 20140416, end: 20140418
  25. FLUOXETINE [Suspect]
     Active Substance: FLUOXETINE HYDROCHLORIDE
     Dosage: 20 DOSAGE FORM, QD
     Route: 048
     Dates: start: 20141201, end: 20141201
  26. PARACETAMOL [Suspect]
     Active Substance: ACETAMINOPHEN
     Indication: PRODUCT USED FOR UNKNOWN INDICATION
     Dosage: UNK
     Dates: start: 20140510, end: 20140521
  27. CO-AMOXICLAV                       /00756801/ [Concomitant]
     Active Substance: AMOXICILLIN\CLAVULANIC ACID
     Dosage: 1200 MILLIGRAM, TID
     Route: 042
     Dates: start: 20140416, end: 20140418
  28. TRAMADOL. [Concomitant]
     Active Substance: TRAMADOL
     Dosage: 50 TO 100 MG, EVERY 4 HOURS, PRN
     Route: 048
     Dates: start: 20140416
  29. FUROSEMIDE. [Concomitant]
     Active Substance: FUROSEMIDE

REACTIONS (14)
  - Overdose [Unknown]
  - Vomiting [Recovered/Resolved]
  - Tobacco abuse [Recovered/Resolved]
  - Intentional overdose [Recovered/Resolved]
  - Syncope [Recovered/Resolved]
  - Diarrhoea haemorrhagic [Recovered/Resolved]
  - Bradycardia [Recovered/Resolved]
  - Acute coronary syndrome [Unknown]
  - Hypotension [Recovered/Resolved]
  - Tendon disorder [Recovered/Resolved]
  - Radial nerve compression [Recovered/Resolved]
  - Suicide attempt [Recovered/Resolved]
  - Myocardial infarction [Unknown]
  - Depressed mood [Not Recovered/Not Resolved]

NARRATIVE: CASE EVENT DATE: 2013
